FAERS Safety Report 8363588-4 (Version None)
Quarter: 2012Q2

REPORT INFORMATION
  Report Type: 
  Country: None (occurrence: None)
  Receive Date: 20120516
  Receipt Date: 20120505
  Transmission Date: 20120825
  Serious: Yes (Other)
  Sender: FDA-Public Use
  Company Number: CA-JNJFOC-20120506867

PATIENT
  Sex: Female
  Weight: 78 kg

DRUGS (3)
  1. REMICADE [Suspect]
     Indication: CROHN'S DISEASE
     Route: 042
     Dates: start: 20120504
  2. REMICADE [Suspect]
     Route: 042
     Dates: start: 20120507
  3. BENADRYL [Concomitant]
     Route: 048

REACTIONS (2)
  - HYPOAESTHESIA ORAL [None]
  - INFUSION RELATED REACTION [None]
